FAERS Safety Report 10608308 (Version 1)
Quarter: 2014Q4

REPORT INFORMATION
  Report Type: Spontaneous
  Country: MX (occurrence: MX)
  Receive Date: 20141125
  Receipt Date: 20141125
  Transmission Date: 20150529
  Serious: Yes (Other)
  Sender: FDA-Public Use
  Company Number: MX-B.I. PHARMACEUTICALS,INC./RIDGEFIELD-2014-BI-55874MX

PATIENT
  Sex: Male
  Weight: 78.1 kg

DRUGS (4)
  1. GILOTRIF [Suspect]
     Active Substance: AFATINIB
     Indication: LUNG NEOPLASM MALIGNANT
     Dosage: 40 MG
     Route: 048
     Dates: start: 20140908, end: 20141009
  2. INVANZ [Concomitant]
     Active Substance: ERTAPENEM SODIUM
     Indication: ANTIBIOTIC THERAPY
     Route: 042
     Dates: start: 20141017
  3. DYNASTAT [Concomitant]
     Active Substance: PARECOXIB SODIUM
     Indication: ANTIBIOTIC THERAPY
     Route: 042
     Dates: start: 20141017, end: 20141021
  4. OMEPRAZOLE. [Concomitant]
     Active Substance: OMEPRAZOLE
     Indication: DRUG THERAPY
     Route: 042
     Dates: start: 20141017, end: 20141020

REACTIONS (1)
  - Seizure [Recovered/Resolved]
